FAERS Safety Report 4879739-X (Version None)
Quarter: 2006Q1

REPORT INFORMATION
  Report Type: 
  Country: None (occurrence: None)
  Receive Date: 20060111
  Receipt Date: 20060103
  Transmission Date: 20060701
  Serious: Yes (Hospitalization, Other)
  Sender: FDA-Public Use
  Company Number: DEWYE234714DEC05

PATIENT
  Sex: Female

DRUGS (1)
  1. VENLAFAXINE HCL [Suspect]
     Indication: NARCOLEPSY
     Dosage: 75 MG 3X PER 1 DAY, ORAL
     Route: 048

REACTIONS (2)
  - CATECHOLAMINES URINE INCREASED [None]
  - HYPERTENSIVE CRISIS [None]
